FAERS Safety Report 16475414 (Version 1)
Quarter: 2019Q2

REPORT INFORMATION
  Report Type: Spontaneous
  Country: NO (occurrence: NO)
  Receive Date: 20190625
  Receipt Date: 20190625
  Transmission Date: 20190711
  Serious: Yes (Death)
  Sender: FDA-Public Use
  Company Number: PHHY2019NO145849

PATIENT
  Age: 78 Year
  Sex: Female

DRUGS (2)
  1. PREDNISOLON [Interacting]
     Active Substance: PREDNISOLONE
     Indication: RHEUMATIC DISORDER
     Dosage: QD (7.5 MG 3 DAYS A WEEK AND 5 MG 4 DAYS A WEEK)
     Route: 048
     Dates: start: 2019, end: 2019
  2. VOLTAREN [Suspect]
     Active Substance: DICLOFENAC SODIUM
     Indication: BACK PAIN
     Dosage: UNK
     Route: 048
     Dates: start: 201901, end: 201901

REACTIONS (2)
  - Sepsis [Fatal]
  - Duodenal ulcer perforation [Fatal]

NARRATIVE: CASE EVENT DATE: 20190123
